FAERS Safety Report 7770533-9 (Version None)
Quarter: 2011Q3

REPORT INFORMATION
  Report Type: 
  Country: None (occurrence: None)
  Receive Date: 20110922
  Receipt Date: 20110622
  Transmission Date: 20111222
  Serious: No
  Sender: FDA-Public Use
  Company Number: US-ASTRAZENECA-2011SE37741

PATIENT
  Age: 64 Year
  Sex: Female
  Weight: 95.3 kg

DRUGS (5)
  1. SEROQUEL [Suspect]
     Route: 048
     Dates: start: 20101201, end: 20101201
  2. CYMBALTA [Concomitant]
  3. SEROQUEL [Suspect]
     Indication: BIPOLAR DISORDER
     Route: 048
     Dates: start: 20010101, end: 20101201
  4. SEROQUEL [Suspect]
     Route: 048
     Dates: start: 20101201
  5. XANAX [Concomitant]

REACTIONS (4)
  - ABDOMINAL PAIN UPPER [None]
  - FEELING ABNORMAL [None]
  - ABDOMINAL MASS [None]
  - DIARRHOEA [None]
